FAERS Safety Report 18931761 (Version 1)
Quarter: 2021Q1

REPORT INFORMATION
  Report Type: Spontaneous
  Country: US (occurrence: US)
  Receive Date: 20210223
  Receipt Date: 20210223
  Transmission Date: 20210420
  Serious: No
  Sender: FDA-Public Use
  Company Number: US-IGSA-BIG0010800

PATIENT
  Age: 36 Year
  Sex: Female
  Weight: 63 kg

DRUGS (8)
  1. AMOXICILLIN. [Concomitant]
     Active Substance: AMOXICILLIN
  2. ANORO ELLIPTA [Concomitant]
     Active Substance: UMECLIDINIUM BROMIDE\VILANTEROL TRIFENATATE
  3. PROLASTIN?C LIQUID [Suspect]
     Active Substance: .ALPHA.1-PROTEINASE INHIBITOR HUMAN
     Dosage: 3780 MILLIGRAM, Q.WK.
     Route: 042
     Dates: start: 20200717
  4. PROLASTIN?C LIQUID [Suspect]
     Active Substance: .ALPHA.1-PROTEINASE INHIBITOR HUMAN
     Dosage: 3780 MILLIGRAM, Q.WK.
     Route: 042
     Dates: start: 2020
  5. TYLENOL [Concomitant]
     Active Substance: ACETAMINOPHEN
     Indication: PREMEDICATION
     Dosage: UNK
     Dates: start: 20200717
  6. PROLASTIN?C LIQUID [Suspect]
     Active Substance: .ALPHA.1-PROTEINASE INHIBITOR HUMAN
     Indication: ALPHA-1 ANTITRYPSIN DEFICIENCY
     Dosage: 3780 MILLIGRAM, Q.WK.
     Route: 042
     Dates: start: 202007
  7. CLARITIN [Concomitant]
     Active Substance: LORATADINE
  8. ZOFRAN [Concomitant]
     Active Substance: ONDANSETRON HYDROCHLORIDE
     Indication: PREMEDICATION
     Dosage: UNK
     Dates: start: 20200717

REACTIONS (2)
  - Nausea [Recovering/Resolving]
  - Migraine [Not Recovered/Not Resolved]

NARRATIVE: CASE EVENT DATE: 202007
